FAERS Safety Report 11116291 (Version 5)
Quarter: 2015Q4

REPORT INFORMATION
  Report Type: Spontaneous
  Country: US (occurrence: US)
  Receive Date: 20150515
  Receipt Date: 20151009
  Transmission Date: 20160304
  Serious: Yes (Other)
  Sender: FDA-Public Use
  Company Number: PHHY2015US047666

PATIENT
  Age: 48 Year
  Sex: Female

DRUGS (10)
  1. THYROXIN [Suspect]
     Active Substance: LEVOTHYROXINE
     Indication: PRODUCT USED FOR UNKNOWN INDICATION
     Dosage: UNK
     Route: 065
  2. LIPITOR [Suspect]
     Active Substance: ATORVASTATIN CALCIUM
     Indication: PRODUCT USED FOR UNKNOWN INDICATION
     Dosage: UNK
     Route: 065
  3. LIORESAL [Suspect]
     Active Substance: BACLOFEN
     Dosage: 651 UG, QD (CONCENTRATION: 2000 MCG/ML)
     Route: 037
     Dates: start: 20150116
  4. LIORESAL [Suspect]
     Active Substance: BACLOFEN
     Dosage: 617 UG, QD (CONCENTRATION: 2000 MCG/ML)
     Route: 037
  5. LIORESAL [Suspect]
     Active Substance: BACLOFEN
     Dosage: 96 UG, QD
     Route: 037
  6. LIORESAL [Suspect]
     Active Substance: BACLOFEN
     Dosage: 651.1 UG, QD
     Route: 037
  7. ACETYLSALICYLIC ACID [Suspect]
     Active Substance: ASPIRIN
     Indication: PRODUCT USED FOR UNKNOWN INDICATION
     Dosage: UNK
     Route: 065
  8. LIORESAL [Suspect]
     Active Substance: BACLOFEN
     Dosage: 570 UG, QD (CONCENTRATION: 2000 MCG/ML)
     Route: 037
  9. LIORESAL [Suspect]
     Active Substance: BACLOFEN
     Dosage: 12.2 UG, QD
     Route: 037
  10. LIORESAL [Suspect]
     Active Substance: BACLOFEN
     Indication: MUSCLE SPASTICITY
     Dosage: 570 UG, QD
     Route: 037

REACTIONS (9)
  - Drug hypersensitivity [Unknown]
  - Wound [Unknown]
  - Somnolence [Unknown]
  - Fall [Unknown]
  - Weight decreased [Unknown]
  - Respiratory arrest [Unknown]
  - Muscle spasticity [Unknown]
  - No therapeutic response [Unknown]
  - Decubitus ulcer [Unknown]

NARRATIVE: CASE EVENT DATE: 201312
